FAERS Safety Report 9696978 (Version 2)
Quarter: 2013Q4

REPORT INFORMATION
  Report Type: Spontaneous
  Country: US (occurrence: US)
  Receive Date: 20131119
  Receipt Date: 20131219
  Transmission Date: 20140711
  Serious: No
  Sender: FDA-Public Use
  Company Number: US-GILEAD-2013-0088214

PATIENT
  Sex: Female

DRUGS (4)
  1. LETAIRIS [Suspect]
     Indication: PULMONARY HYPERTENSION
     Dosage: 10 MG, QD
     Route: 048
     Dates: start: 20131114
  2. LETAIRIS [Suspect]
     Indication: EXPOSURE TO TOXIC AGENT
     Dosage: 5 MG, QD
     Route: 048
     Dates: start: 20130916
  3. VENTAVIS [Concomitant]
     Dosage: UNK
  4. REVATIO [Concomitant]
     Dosage: UNK

REACTIONS (2)
  - Rhinorrhoea [Unknown]
  - Nasopharyngitis [Unknown]
